FAERS Safety Report 25270742 (Version 2)
Quarter: 2025Q2

REPORT INFORMATION
  Report Type: Report from Study
  Country: US (occurrence: US)
  Receive Date: 20250505
  Receipt Date: 20250520
  Transmission Date: 20250717
  Serious: Yes (Other)
  Sender: ABBVIE
  Company Number: US-ABBVIE-6000393

PATIENT
  Age: 86 Year
  Sex: Male

DRUGS (3)
  1. IMBRUVICA [Suspect]
     Active Substance: IBRUTINIB
     Indication: Chronic lymphocytic leukaemia
     Route: 048
     Dates: start: 20191017
  2. IMBRUVICA [Suspect]
     Active Substance: IBRUTINIB
     Indication: Chronic lymphocytic leukaemia
     Dosage: MISSED 7 DOSES
     Route: 048
  3. IMBRUVICA [Suspect]
     Active Substance: IBRUTINIB
     Indication: Chronic lymphocytic leukaemia
     Dosage: MISSED 7 DOSES
     Route: 048
     Dates: start: 202211

REACTIONS (5)
  - Aortic valve replacement [Unknown]
  - White blood cell count increased [Not Recovered/Not Resolved]
  - Cardiac device implantation [Recovered/Resolved]
  - Hypertension [Unknown]
  - Arthropathy [Unknown]

NARRATIVE: CASE EVENT DATE: 20240101
